FAERS Safety Report 5662244-0 (Version None)
Quarter: 2008Q1

REPORT INFORMATION
  Report Type: 
  Country: None (occurrence: None)
  Receive Date: 20080312
  Receipt Date: 20080229
  Transmission Date: 20080703
  Serious: Yes (Death, Hospitalization, Other)
  Sender: FDA-Public Use
  Company Number: GB-PFIZER INC-2007087886

PATIENT
  Sex: Female
  Weight: 8 kg

DRUGS (5)
  1. SILDENAFIL (PAH) [Suspect]
     Indication: LUNG DISORDER
     Route: 048
  2. SILDENAFIL (PAH) [Suspect]
     Indication: PULMONARY HYPERTENSION
  3. ANTIBIOTICS [Concomitant]
  4. DIURETICS [Concomitant]
  5. DRUG, UNSPECIFIED [Concomitant]

REACTIONS (7)
  - ABDOMINAL DISTENSION [None]
  - CHOREOATHETOSIS [None]
  - CONVULSION [None]
  - FEEDING DISORDER OF INFANCY OR EARLY CHILDHOOD [None]
  - INTESTINAL OBSTRUCTION [None]
  - LUNG DISORDER [None]
  - NEURODEGENERATIVE DISORDER [None]
